FAERS Safety Report 12605762 (Version 1)
Quarter: 2016Q3

REPORT INFORMATION
  Report Type: Spontaneous
  Country: US (occurrence: None)
  Receive Date: 20160728
  Receipt Date: 20160728
  Transmission Date: 20161109
  Serious: No
  Sender: FDA-Public Use
  Company Number: None

PATIENT
  Age: 59 Year
  Sex: Male

DRUGS (1)
  1. AMPYRA [Suspect]
     Active Substance: DALFAMPRIDINE
     Indication: MULTIPLE SCLEROSIS
     Route: 048
     Dates: start: 20160629

REACTIONS (6)
  - Haematocrit decreased [None]
  - Red blood cell count decreased [None]
  - Blood immunoglobulin M decreased [None]
  - B-lymphocyte count decreased [None]
  - Laboratory test abnormal [None]
  - Haemoglobin decreased [None]

NARRATIVE: CASE EVENT DATE: 20160718
